FAERS Safety Report 11427987 (Version 1)
Quarter: 2015Q3

REPORT INFORMATION
  Report Type: Spontaneous
  Country: US (occurrence: None)
  Receive Date: 20150827
  Receipt Date: 20150827
  Transmission Date: 20151125
  Serious: Yes (Other)
  Sender: FDA-Public Use
  Company Number: None

PATIENT
  Sex: Female
  Weight: 47.17 kg

DRUGS (2)
  1. SYNTHROID [Concomitant]
     Active Substance: LEVOTHYROXINE SODIUM
  2. JUBLIA [Suspect]
     Active Substance: EFINACONAZOLE
     Indication: ONYCHOMYCOSIS
     Dosage: TOPICAL -10%?4 ML-BOTTLE?DROPS-?APPLY 1 OR 2X A DAY ?TWICE DAILY?ON THE SKIN (TOES)
     Route: 061
     Dates: start: 20150430, end: 20150710

REACTIONS (6)
  - Swelling [None]
  - Erythema [None]
  - Blister [None]
  - Pruritus [None]
  - Pain [None]
  - Infection [None]
